FAERS Safety Report 17923814 (Version 1)
Quarter: 2020Q2

REPORT INFORMATION
  Report Type: Spontaneous
  Country: US (occurrence: US)
  Receive Date: 20200622
  Receipt Date: 20200622
  Transmission Date: 20200714
  Serious: Yes (Other)
  Sender: FDA-Public Use
  Company Number: None

PATIENT
  Age: 61 Year
  Sex: Male
  Weight: 75.1 kg

DRUGS (20)
  1. FENOBIRATE ORAL [Concomitant]
     Dates: start: 20200616, end: 20200617
  2. ROCURONIUM IV INFUSION [Concomitant]
     Dates: start: 20200617, end: 20200619
  3. FAMOTIDINE IV [Concomitant]
     Dates: start: 20200617, end: 20200619
  4. AZITHROMYCIN IV [Concomitant]
     Dates: start: 20200616, end: 20200617
  5. DEXAMETHASONE IV [Concomitant]
     Active Substance: DEXAMETHASONE
     Dates: start: 20200617
  6. MIDAZOLAM IV INFUSION [Concomitant]
     Dates: start: 20200618, end: 20200619
  7. HYDROMORPHONE IV INFUSION [Concomitant]
     Dates: start: 20200617
  8. ACETAMINOPHEN TABLET [Concomitant]
     Active Substance: ACETAMINOPHEN
     Dates: start: 20200616
  9. ASPIRIN TABLET [Concomitant]
     Active Substance: ASPIRIN
     Dates: start: 20200616, end: 20200618
  10. ATORVOSTATIN ORAL [Concomitant]
     Dates: start: 20200616
  11. NOREPINEPHRINE IV INFUSION [Concomitant]
     Dates: start: 20200617, end: 20200619
  12. PHENOBARBITAL INJ IV [Concomitant]
     Dates: start: 20200618, end: 20200618
  13. INSULIN REGULAR INFUSION [Concomitant]
     Dates: start: 20200617
  14. REMDESIVIR. [Suspect]
     Active Substance: REMDESIVIR
     Indication: COVID-19
     Route: 042
     Dates: start: 20200617, end: 20200618
  15. CEFTRIAXONE IV [Concomitant]
     Dates: start: 20200616, end: 20200617
  16. FENTANYL IV [Concomitant]
     Active Substance: FENTANYL
     Dates: start: 20200617, end: 20200617
  17. REMDESIVIR. [Suspect]
     Active Substance: REMDESIVIR
     Indication: COVID-19
     Dosage: ?          OTHER FREQUENCY:INITIAL DOSE;?
     Route: 042
     Dates: start: 20200616, end: 20200616
  18. ETOMIDATE IV [Concomitant]
     Dates: start: 20200617, end: 20200617
  19. PROPOFOL INFUSION [Concomitant]
     Active Substance: PROPOFOL
     Dates: start: 20200617, end: 20200618
  20. POTASSIUM BICARB-CITRIC ACID TABLET [Concomitant]
     Dates: start: 20200618, end: 20200618

REACTIONS (3)
  - Blood creatinine increased [None]
  - Haemodialysis [None]
  - Urine output decreased [None]

NARRATIVE: CASE EVENT DATE: 20200619
